FAERS Safety Report 17280101 (Version 1)
Quarter: 2020Q1

REPORT INFORMATION
  Report Type: Spontaneous
  Country: FR (occurrence: FR)
  Receive Date: 20200117
  Receipt Date: 20200117
  Transmission Date: 20200409
  Serious: Yes (Other)
  Sender: FDA-Public Use
  Company Number: FR-TEVA-2020-FR-1168132

PATIENT
  Age: 71 Year
  Sex: Male

DRUGS (12)
  1. TAHOR [Concomitant]
     Active Substance: ATORVASTATIN CALCIUM
  2. TEMERITDUO [Concomitant]
     Active Substance: HYDROCHLOROTHIAZIDE\NEBIVOLOL HYDROCHLORIDE
  3. GLICLAZIDE [Concomitant]
     Active Substance: GLICLAZIDE
  4. TRAMADOL BASE [Suspect]
     Active Substance: TRAMADOL
     Indication: PAIN
     Dosage: 1 DOSAGE FORMS, TOTAL
     Route: 048
     Dates: start: 20190515, end: 20190515
  5. METFORMINE [Concomitant]
     Active Substance: METFORMIN HYDROCHLORIDE
  6. EUPANTOL [Concomitant]
     Active Substance: PANTOPRAZOLE SODIUM
  7. KARDEGIC [Concomitant]
     Active Substance: ASPIRIN DL-LYSINE
  8. COVERAM [Concomitant]
     Active Substance: AMLODIPINE\PERINDOPRIL
  9. TRILEPTAL [Concomitant]
     Active Substance: OXCARBAZEPINE
  10. KEPPRA [Concomitant]
     Active Substance: LEVETIRACETAM
  11. EUPRESSYL [Concomitant]
     Active Substance: URAPIDIL
  12. LASILIX [Concomitant]
     Active Substance: FUROSEMIDE

REACTIONS (2)
  - Somnolence [Recovered/Resolved]
  - Depressed level of consciousness [Recovered/Resolved]

NARRATIVE: CASE EVENT DATE: 20190515
